FAERS Safety Report 7293451-1 (Version None)
Quarter: 2011Q1

REPORT INFORMATION
  Report Type: 
  Country: None (occurrence: None)
  Receive Date: 20110215
  Receipt Date: 20110210
  Transmission Date: 20110831
  Serious: Yes (Other)
  Sender: FDA-Public Use
  Company Number: US-PFIZER INC-2011030679

PATIENT
  Sex: Male

DRUGS (3)
  1. LIPITOR [Suspect]
     Indication: ARTERIAL OCCLUSIVE DISEASE
  2. SIMVASTATIN [Suspect]
     Dosage: UNK
  3. LIPITOR [Suspect]
     Indication: CORONARY ARTERY DISEASE
     Dosage: UNK

REACTIONS (2)
  - ATRIOVENTRICULAR BLOCK [None]
  - MYALGIA [None]
